FAERS Safety Report 7544318-2 (Version None)
Quarter: 2011Q2

REPORT INFORMATION
  Report Type: 
  Country: None (occurrence: None)
  Receive Date: 20110613
  Receipt Date: 20071128
  Transmission Date: 20111010
  Serious: Yes (Hospitalization, Other)
  Sender: FDA-Public Use
  Company Number: PHHO2007VE10344

PATIENT
  Sex: Male

DRUGS (3)
  1. PLAVIX [Concomitant]
     Dosage: 75 MG, QD
  2. CORDARONE [Concomitant]
     Dosage: UNK, BID
  3. DIOVAN HCT [Suspect]
     Indication: HYPERTENSION
     Dosage: 172 MG, QD

REACTIONS (1)
  - CORONARY ARTERY OCCLUSION [None]
